FAERS Safety Report 7942876-7 (Version None)
Quarter: 2011Q4

REPORT INFORMATION
  Report Type: 
  Country: None (occurrence: None)
  Receive Date: 20111128
  Receipt Date: 20111115
  Transmission Date: 20120403
  Serious: Yes (Disabling)
  Sender: FDA-Public Use
  Company Number: FR-MERCK-1111USA02605

PATIENT
  Age: 72 Year
  Sex: Male

DRUGS (6)
  1. ZETIA [Suspect]
     Indication: DYSLIPIDAEMIA
     Route: 048
     Dates: end: 20110906
  2. LERCANIDIPINE [Suspect]
     Route: 048
     Dates: start: 20110522, end: 20110620
  3. HYZAAR [Concomitant]
     Route: 065
  4. DIGOXIN [Concomitant]
     Route: 065
  5. FLECAINIDE ACETATE [Concomitant]
     Route: 065
  6. ASPIRIN [Concomitant]
     Route: 065

REACTIONS (2)
  - TENDONITIS [None]
  - PAIN IN EXTREMITY [None]
